FAERS Safety Report 8052510-6 (Version None)
Quarter: 2012Q1

REPORT INFORMATION
  Report Type: 
  Country: None (occurrence: None)
  Receive Date: 20120118
  Receipt Date: 20120112
  Transmission Date: 20120608
  Serious: Yes (Other)
  Sender: FDA-Public Use
  Company Number: SE-PFIZER INC-2012009057

PATIENT
  Age: 30 Year
  Sex: Female

DRUGS (1)
  1. LYRICA [Suspect]
     Indication: GENERALISED ANXIETY DISORDER
     Dosage: UNK
     Dates: end: 20101211

REACTIONS (5)
  - BEDRIDDEN [None]
  - DIARRHOEA [None]
  - VOMITING PROJECTILE [None]
  - AMNESIA [None]
  - IRRITABLE BOWEL SYNDROME [None]
